FAERS Safety Report 7865378-5 (Version None)
Quarter: 2011Q4

REPORT INFORMATION
  Report Type: 
  Country: None (occurrence: None)
  Receive Date: 20111028
  Receipt Date: 20101208
  Transmission Date: 20120403
  Serious: Yes (Hospitalization)
  Sender: FDA-Public Use
  Company Number: US-GLAXOSMITHKLINE-A0898592A

PATIENT
  Sex: Female

DRUGS (7)
  1. SPIRIVA [Concomitant]
  2. XOPENEX [Concomitant]
  3. ADVAIR DISKUS 100/50 [Suspect]
     Indication: ASTHMA
     Dosage: 1PUFF TWICE PER DAY
     Route: 055
  4. OMEPRAZOLE [Concomitant]
  5. SPIRONOLACTONE [Concomitant]
  6. HYDROCHLOROTHIAZIDE [Concomitant]
  7. DILTIAZEM HCL [Concomitant]

REACTIONS (3)
  - BRONCHITIS [None]
  - PRODUCT QUALITY ISSUE [None]
  - DRUG INEFFECTIVE [None]
